FAERS Safety Report 18029631 (Version 1)
Quarter: 2020Q3

REPORT INFORMATION
  Report Type: Spontaneous
  Country: US (occurrence: US)
  Receive Date: 20200715
  Receipt Date: 20200715
  Transmission Date: 20201103
  Serious: Yes (Other)
  Sender: FDA-Public Use
  Company Number: None

PATIENT
  Age: 62 Year
  Sex: Male
  Weight: 91.2 kg

DRUGS (9)
  1. CEFTRIAXONE. [Concomitant]
     Active Substance: CEFTRIAXONE
     Dates: start: 20200712
  2. GLARGINE INSULIN [Concomitant]
     Active Substance: INSULIN GLARGINE
     Dates: start: 20200713
  3. ACETAMINIOPHEN [Concomitant]
     Dates: start: 20200712
  4. AZITHROMYCIN ANHYDROUS. [Concomitant]
     Active Substance: AZITHROMYCIN ANHYDROUS
     Dates: start: 20200712
  5. ENOXAPARIN [Concomitant]
     Active Substance: ENOXAPARIN
     Dates: start: 20200712
  6. LISPRO INSULIN [Concomitant]
     Active Substance: INSULIN LISPRO
     Dates: start: 20200713
  7. 0.9% NACL [Concomitant]
     Active Substance: SODIUM CHLORIDE
     Dates: start: 20200712
  8. REMDESIVIR. [Suspect]
     Active Substance: REMDESIVIR
     Indication: COVID-19
     Route: 040
     Dates: start: 20200713
  9. DEXAMETHASONE. [Concomitant]
     Active Substance: DEXAMETHASONE
     Dates: start: 20200713

REACTIONS (1)
  - Bradycardia [None]

NARRATIVE: CASE EVENT DATE: 20200714
